FAERS Safety Report 4344968-0 (Version None)
Quarter: 2004Q2

REPORT INFORMATION
  Report Type: 
  Country: None (occurrence: None)
  Receive Date: 20040421
  Receipt Date: 20040421
  Transmission Date: 20050107
  Serious: Yes (Hospitalization)
  Sender: FDA-Public Use
  Company Number: None

PATIENT

DRUGS (3)
  1. VICODIN [Suspect]
  2. WARFARIN SODIUM [Suspect]
  3. NSAIDS OTC UNK [Suspect]

REACTIONS (5)
  - ARTHRALGIA [None]
  - FALL [None]
  - INTERNATIONAL NORMALISED RATIO INCREASED [None]
  - MEDICATION ERROR [None]
  - RECTAL HAEMORRHAGE [None]
